FAERS Safety Report 25234473 (Version 2)
Quarter: 2025Q2

REPORT INFORMATION
  Report Type: Spontaneous
  Country: JP (occurrence: JP)
  Receive Date: 20250424
  Receipt Date: 20250612
  Transmission Date: 20250716
  Serious: Yes (Life-Threatening, Hospitalization, Other)
  Sender: CSL BEHRING
  Company Number: JP-BEH-2025198597

PATIENT
  Age: 18 Year
  Sex: Female
  Weight: 25 kg

DRUGS (3)
  1. HIZENTRA [Suspect]
     Active Substance: HUMAN IMMUNOGLOBULIN G
     Indication: Protein-losing gastroenteropathy
     Dosage: 4 G, QW
     Route: 058
     Dates: start: 202102
  2. HIZENTRA [Suspect]
     Active Substance: HUMAN IMMUNOGLOBULIN G
     Route: 058
  3. BUDESONIDE [Concomitant]
     Active Substance: BUDESONIDE
     Indication: Protein-losing gastroenteropathy
     Dosage: 3 MG, DAILY
     Route: 048
     Dates: start: 201909

REACTIONS (4)
  - Protein-losing gastroenteropathy [Recovering/Resolving]
  - Blood albumin decreased [Recovering/Resolving]
  - Oedema [Recovering/Resolving]
  - Blood immunoglobulin G decreased [Recovering/Resolving]

NARRATIVE: CASE EVENT DATE: 20240801
